FAERS Safety Report 12322797 (Version 1)
Quarter: 2016Q2

REPORT INFORMATION
  Report Type: Spontaneous
  Country: US (occurrence: US)
  Receive Date: 20160502
  Receipt Date: 20160502
  Transmission Date: 20160815
  Serious: No
  Sender: FDA-Public Use
  Company Number: US-ASTRAZENECA-2016SE31939

PATIENT
  Sex: Male

DRUGS (2)
  1. BABY ASPIRIN [Concomitant]
     Active Substance: ASPIRIN
     Indication: THERAPEUTIC PROCEDURE
     Route: 048
     Dates: start: 2015
  2. BRILINTA [Suspect]
     Active Substance: TICAGRELOR
     Indication: STENT PLACEMENT
     Route: 048
     Dates: start: 2015

REACTIONS (2)
  - Sciatic nerve neuropathy [Unknown]
  - Paraesthesia [Unknown]

NARRATIVE: CASE EVENT DATE: 2016
